FAERS Safety Report 5411845-3 (Version None)
Quarter: 2007Q3

REPORT INFORMATION
  Report Type: 
  Country: None (occurrence: None)
  Receive Date: 20070713
  Receipt Date: 20070321
  Transmission Date: 20080115
  Serious: No
  Sender: FDA-Public Use
  Company Number: 2007SP001026

PATIENT
  Age: 52 Year
  Sex: Male
  Weight: 92.5338 kg

DRUGS (3)
  1. LUNESTA [Suspect]
     Indication: INSOMNIA
     Dosage: 3 MG;PRN;ORAL   6 MG;ORAL
     Route: 048
     Dates: start: 20061101
  2. TYLENOL [Concomitant]
  3. PRILOSEC [Concomitant]

REACTIONS (2)
  - DRUG INEFFECTIVE [None]
  - MIDDLE INSOMNIA [None]
